FAERS Safety Report 4569782-2 (Version None)
Quarter: 2005Q1

REPORT INFORMATION
  Report Type: 
  Country: None (occurrence: None)
  Receive Date: 20050131
  Receipt Date: 20050118
  Transmission Date: 20050727
  Serious: Yes (Hospitalization)
  Sender: FDA-Public Use
  Company Number: 200416363BCC

PATIENT
  Age: 58 Year
  Sex: 0
  Weight: 88.4514 kg

DRUGS (3)
  1. ALEVE [Suspect]
     Indication: OSTEOARTHRITIS
     Dosage: 330/330 MG, BID, ORAL
     Route: 048
     Dates: start: 20040101
  2. TYLENOL [Concomitant]
  3. LOPID [Concomitant]

REACTIONS (5)
  - BRAIN ABSCESS [None]
  - INTERNATIONAL NORMALISED RATIO INCREASED [None]
  - POST PROCEDURAL COMPLICATION [None]
  - PROTHROMBIN TIME SHORTENED [None]
  - THROMBOSIS [None]
